FAERS Safety Report 4860328-8 (Version None)
Quarter: 2005Q4

REPORT INFORMATION
  Report Type: 
  Country: None (occurrence: None)
  Receive Date: 20051219
  Receipt Date: 20051209
  Transmission Date: 20060501
  Serious: Yes (Other)
  Sender: FDA-Public Use
  Company Number: CA-BRISTOL-MYERS SQUIBB COMPANY-13217971

PATIENT
  Age: 85 Year
  Sex: Male

DRUGS (25)
  1. TEQUIN [Suspect]
     Route: 048
  2. AMIODARONE HCL [Concomitant]
  3. AMLODIPINE [Concomitant]
     Route: 048
  4. CLOPIDOGREL BISULFATE [Concomitant]
     Route: 048
  5. DALTEPARIN [Concomitant]
  6. DIGOXIN [Concomitant]
  7. DOCUSATE SODIUM [Concomitant]
  8. ASPIRIN [Concomitant]
  9. EPREX [Concomitant]
  10. FLUTICASONE [Concomitant]
  11. IPRATROPIUM BROMIDE [Concomitant]
  12. IPRATROPIUM + SALBUTAMOL [Concomitant]
     Route: 055
  13. LACTULOSE [Concomitant]
  14. LIPITOR [Concomitant]
     Route: 048
  15. LORAZEPAM [Concomitant]
  16. METHYLPREDNISOLONE [Concomitant]
  17. METOPROLOL [Concomitant]
  18. MORPHINE SULFATE [Concomitant]
  19. MULTIVITAMIN [Concomitant]
  20. NITROGLYCERIN [Concomitant]
  21. NORMAL SALINE [Concomitant]
  22. OMEPRAZOLE [Concomitant]
  23. POTASSIUM CHLORIDE [Concomitant]
  24. PREDNISONE TAB [Concomitant]
  25. SENNOSIDE [Concomitant]

REACTIONS (10)
  - BLOOD CREATININE ABNORMAL [None]
  - BLOOD GLUCOSE INCREASED [None]
  - BLOOD UREA INCREASED [None]
  - COUGH [None]
  - DEHYDRATION [None]
  - DIARRHOEA [None]
  - MALAISE [None]
  - NAUSEA [None]
  - PRODUCTIVE COUGH [None]
  - VOMITING [None]
